FAERS Safety Report 8126218-2 (Version None)
Quarter: 2012Q1

REPORT INFORMATION
  Report Type: 
  Country: None (occurrence: None)
  Receive Date: 20120209
  Receipt Date: 20120207
  Transmission Date: 20120608
  Serious: Yes (Hospitalization, Other)
  Sender: FDA-Public Use
  Company Number: PHEH2012US003315

PATIENT
  Sex: Female
  Weight: 43 kg

DRUGS (2)
  1. OPIUM [Concomitant]
  2. EXJADE [Suspect]
     Indication: SICKLE CELL ANAEMIA

REACTIONS (6)
  - ACUTE CHEST SYNDROME [None]
  - NAUSEA [None]
  - GENERAL PHYSICAL HEALTH DETERIORATION [None]
  - PAIN [None]
  - ABDOMINAL DISCOMFORT [None]
  - SICKLE CELL ANAEMIA WITH CRISIS [None]
